FAERS Safety Report 5832330-0 (Version None)
Quarter: 2008Q3

REPORT INFORMATION
  Report Type: 
  Country: None (occurrence: None)
  Receive Date: 20080804
  Receipt Date: 20080728
  Transmission Date: 20090109
  Serious: Yes (Hospitalization)
  Sender: FDA-Public Use
  Company Number: B0530828A

PATIENT
  Age: 63 Year
  Sex: Male

DRUGS (2)
  1. VALTREX [Suspect]
     Indication: HERPES ZOSTER
     Dosage: 1000MG TWICE PER DAY
     Route: 048
     Dates: start: 20080716, end: 20080718
  2. LOXONIN [Suspect]
     Indication: NEURALGIA
     Route: 048

REACTIONS (6)
  - BLOOD CREATININE INCREASED [None]
  - BLOOD UREA INCREASED [None]
  - ENCEPHALOPATHY [None]
  - OEDEMA [None]
  - RENAL DISORDER [None]
  - URINE OUTPUT DECREASED [None]
